FAERS Safety Report 5626457-6 (Version None)
Quarter: 2008Q1

REPORT INFORMATION
  Report Type: 
  Country: None (occurrence: None)
  Receive Date: 20080214
  Receipt Date: 20080207
  Transmission Date: 20080703
  Serious: Yes (Other)
  Sender: FDA-Public Use
  Company Number: US-JNJFOC-20071100985

PATIENT
  Sex: Male
  Weight: 68.04 kg

DRUGS (5)
  1. INVEGA [Suspect]
     Indication: SCHIZOPHRENIA
     Route: 048
  2. SEROQUEL [Concomitant]
  3. SEROQUEL [Concomitant]
  4. SEROQUEL [Concomitant]
  5. SEROQUEL [Concomitant]
     Indication: SCHIZOPHRENIA

REACTIONS (2)
  - CONVULSION [None]
  - SUPRAVENTRICULAR TACHYCARDIA [None]
